FAERS Safety Report 7058374-1 (Version None)
Quarter: 2010Q4

REPORT INFORMATION
  Report Type: 
  Country: None (occurrence: None)
  Receive Date: 20101022
  Receipt Date: 20101015
  Transmission Date: 20110411
  Serious: No
  Sender: FDA-Public Use
  Company Number: US-PFIZER INC-2009228381

PATIENT
  Sex: Male
  Weight: 76.2 kg

DRUGS (4)
  1. VIAGRA [Suspect]
     Indication: ERECTILE DYSFUNCTION
     Dosage: 25 MG, AS NEEDED
  2. HYDROCODONE [Concomitant]
  3. CODEINE [Concomitant]
     Dosage: UNK
  4. SALBUTAMOL [Concomitant]

REACTIONS (2)
  - HEART RATE INCREASED [None]
  - OCULAR HYPERAEMIA [None]
